FAERS Safety Report 4328027-9 (Version None)
Quarter: 2004Q1

REPORT INFORMATION
  Report Type: 
  Country: None (occurrence: None)
  Receive Date: 20040325
  Receipt Date: 20040312
  Transmission Date: 20041129
  Serious: Yes (Other)
  Sender: FDA-Public Use
  Company Number: 2004201173FR

PATIENT
  Age: 76 Year
  Sex: Female

DRUGS (5)
  1. CELEBREX [Suspect]
     Indication: LOCALISED OSTEOARTHRITIS
     Dosage: 200 MG, QD, ORAL
     Route: 048
     Dates: start: 20040205, end: 20040220
  2. PLASCLEDINE [Concomitant]
  3. GINKOR (TROXERUTIN) [Concomitant]
  4. BEFIZAL [Concomitant]
  5. ZOPICLONE [Concomitant]

REACTIONS (2)
  - CREATININE RENAL CLEARANCE DECREASED [None]
  - HYPERKALAEMIA [None]
